FAERS Safety Report 4385432-2 (Version None)
Quarter: 2004Q2

REPORT INFORMATION
  Report Type: 
  Country: None (occurrence: None)
  Receive Date: 20040622
  Receipt Date: 20040609
  Transmission Date: 20050107
  Serious: Yes (Death, Hospitalization)
  Sender: FDA-Public Use
  Company Number: 167103

PATIENT
  Age: 70 Year
  Sex: Female
  Weight: 60.3284 kg

DRUGS (2)
  1. AVONEX [Suspect]
     Indication: MULTIPLE SCLEROSIS
     Dosage: 30 MCG QW IM
     Route: 030
     Dates: start: 19990101, end: 20021001
  2. PEPCID [Concomitant]

REACTIONS (9)
  - CARDIOMEGALY [None]
  - DEPRESSION [None]
  - DYSPHAGIA [None]
  - HYPOXIA [None]
  - PCO2 INCREASED [None]
  - PNEUMONIA [None]
  - PULMONARY OEDEMA [None]
  - UROSEPSIS [None]
  - WEIGHT DECREASED [None]
